FAERS Safety Report 6626007-1 (Version None)
Quarter: 2010Q1

REPORT INFORMATION
  Report Type: 
  Country: None (occurrence: None)
  Receive Date: 20100310
  Receipt Date: 20100303
  Transmission Date: 20100710
  Serious: Yes (Hospitalization)
  Sender: FDA-Public Use
  Company Number: JP-SANOFI-AVENTIS-2010SA012450

PATIENT
  Age: 56 Year
  Sex: Female

DRUGS (6)
  1. LANTUS [Suspect]
     Indication: HYPERGLYCAEMIA
     Route: 058
  2. SOLOSTAR [Suspect]
     Indication: HYPERGLYCAEMIA
  3. MEVALOTIN [Concomitant]
  4. PIOGLITAZONE HCL [Concomitant]
  5. MIGLITOL [Concomitant]
  6. FLOMOX [Concomitant]

REACTIONS (3)
  - ALANINE AMINOTRANSFERASE INCREASED [None]
  - ASPARTATE AMINOTRANSFERASE INCREASED [None]
  - HEPATIC FUNCTION ABNORMAL [None]
